FAERS Safety Report 6724057-8 (Version None)
Quarter: 2010Q2

REPORT INFORMATION
  Report Type: 
  Country: None (occurrence: None)
  Receive Date: 20100513
  Receipt Date: 20100507
  Transmission Date: 20101027
  Serious: Yes (Life-Threatening, Hospitalization)
  Sender: FDA-Public Use
  Company Number: B0652378A

PATIENT
  Age: 41 Year
  Sex: Male

DRUGS (9)
  1. WELLBUTRIN [Suspect]
     Indication: DEPRESSION
     Route: 048
     Dates: start: 20100412, end: 20100417
  2. SEROQUEL [Concomitant]
     Indication: SCHIZOPHRENIA
     Route: 048
     Dates: start: 20100330, end: 20100417
  3. VENLAFAXINE [Concomitant]
     Indication: DEPRESSION
     Dosage: 150MG PER DAY
     Route: 048
     Dates: start: 20100419
  4. DIFLUCORTOLONE [Concomitant]
     Indication: DRUG USE FOR UNKNOWN INDICATION
     Dosage: 15MG PER DAY
     Route: 048
     Dates: start: 20100419
  5. VALPROATE SODIUM [Concomitant]
     Indication: DRUG USE FOR UNKNOWN INDICATION
     Route: 048
     Dates: start: 20100419
  6. VALPROIC ACID [Concomitant]
     Indication: DRUG USE FOR UNKNOWN INDICATION
     Dosage: 300MG PER DAY
     Route: 048
     Dates: start: 20100330
  7. CIPRALEX [Concomitant]
     Indication: DEPRESSION
     Dosage: 5MG PER DAY
     Route: 048
     Dates: start: 20100330
  8. LITHIUM CARBONATE [Concomitant]
     Indication: DRUG USE FOR UNKNOWN INDICATION
     Dosage: 400MG PER DAY
     Route: 048
     Dates: start: 20100406
  9. RIVOTRIL [Concomitant]
     Indication: EPILEPSY
     Dosage: .5MG PER DAY
     Route: 048
     Dates: start: 20100330

REACTIONS (6)
  - CONVULSION [None]
  - INTENSIVE CARE [None]
  - LOSS OF CONSCIOUSNESS [None]
  - MECHANICAL VENTILATION [None]
  - PARTIAL SEIZURES [None]
  - STATUS EPILEPTICUS [None]
